FAERS Safety Report 17123811 (Version 1)
Quarter: 2019Q4

REPORT INFORMATION
  Report Type: Spontaneous
  Country: US (occurrence: US)
  Receive Date: 20191206
  Receipt Date: 20191206
  Transmission Date: 20200122
  Serious: No
  Sender: FDA-Public Use
  Company Number: US-ROCHE-2360429

PATIENT
  Sex: Female

DRUGS (1)
  1. OCREVUS [Suspect]
     Active Substance: OCRELIZUMAB
     Indication: PRODUCT USED FOR UNKNOWN INDICATION
     Route: 065

REACTIONS (8)
  - Nausea [Unknown]
  - Bone pain [Unknown]
  - Weight increased [Unknown]
  - Pain [Unknown]
  - Gait disturbance [Unknown]
  - Alopecia [Unknown]
  - Headache [Unknown]
  - Fatigue [Unknown]
